FAERS Safety Report 9912925 (Version 1)
Quarter: 2014Q1

REPORT INFORMATION
  Report Type: Spontaneous
  Country: JP (occurrence: None)
  Receive Date: 20140214
  Receipt Date: 20140214
  Transmission Date: 20141002
  Serious: Yes (Other)
  Sender: FDA-Public Use
  Company Number: 2014P1001147

PATIENT
  Age: 67 Year
  Sex: Male

DRUGS (1)
  1. METRONIDAZOLE [Suspect]
     Indication: BRAIN ABSCESS
     Route: 048

REACTIONS (6)
  - Confusional state [None]
  - Logorrhoea [None]
  - Dysarthria [None]
  - Ataxia [None]
  - Central nervous system lesion [None]
  - Pressure of speech [None]
